FAERS Safety Report 7716346-5 (Version None)
Quarter: 2011Q3

REPORT INFORMATION
  Report Type: 
  Country: None (occurrence: None)
  Receive Date: 20110829
  Receipt Date: 20110824
  Transmission Date: 20111222
  Serious: Yes (Other)
  Sender: FDA-Public Use
  Company Number: US-JNJFOC-20110504350

PATIENT
  Sex: Male

DRUGS (5)
  1. RISPERDAL [Suspect]
     Indication: PRODUCT USED FOR UNKNOWN INDICATION
     Route: 048
  2. RISPERDAL [Suspect]
     Route: 065
  3. RISPERDAL [Suspect]
     Indication: AUTISM
     Route: 048
     Dates: start: 20060801, end: 20091001
  4. RISPERDAL [Suspect]
     Indication: SCHIZOAFFECTIVE DISORDER
     Route: 048
     Dates: start: 20060801, end: 20091001
  5. ABILIFY [Suspect]
     Indication: PRODUCT USED FOR UNKNOWN INDICATION
     Route: 048

REACTIONS (9)
  - GYNAECOMASTIA [None]
  - OBESITY [None]
  - METABOLIC SYNDROME [None]
  - DEPRESSION [None]
  - WEIGHT INCREASED [None]
  - EXTRAPYRAMIDAL DISORDER [None]
  - ACNE [None]
  - TARDIVE DYSKINESIA [None]
  - DRUG INEFFECTIVE [None]
